FAERS Safety Report 8242968 (Version 7)
Quarter: 2013Q4

REPORT INFORMATION
  Report Type: Spontaneous
  Country: US (occurrence: US)
  Receive Date: 20111114
  Receipt Date: 20131108
  Transmission Date: 20140711
  Serious: Yes (Hospitalization, Other)
  Sender: FDA-Public Use
  Company Number: US-ROCHE-1011927

PATIENT
  Sex: Female
  Weight: 86.26 kg

DRUGS (3)
  1. ACCUTANE [Suspect]
     Indication: ACNE
     Route: 065
     Dates: start: 1996, end: 1996
  2. FEN/PHEN [Concomitant]
  3. ATENOLOL [Concomitant]

REACTIONS (7)
  - Crohn^s disease [Unknown]
  - Intestinal obstruction [Unknown]
  - Inflammatory bowel disease [Unknown]
  - Depression [Unknown]
  - Large intestine polyp [Unknown]
  - Gastrointestinal haemorrhage [Recovered/Resolved]
  - Injury [Unknown]
